FAERS Safety Report 24397776 (Version 1)
Quarter: 2024Q4

REPORT INFORMATION
  Report Type: Spontaneous
  Country: US (occurrence: US)
  Receive Date: 20241004
  Receipt Date: 20241004
  Transmission Date: 20250115
  Serious: Yes (Other)
  Sender: UNKNOWN
  Company Number: US-STALCOR-2024-AER-02207

PATIENT

DRUGS (3)
  1. PECAN [Suspect]
     Active Substance: PECAN
     Indication: Product used for unknown indication
  2. PECAN [Suspect]
     Active Substance: PECAN
  3. PECAN [Suspect]
     Active Substance: PECAN

REACTIONS (5)
  - Anaphylactic reaction [Recovering/Resolving]
  - Sneezing [Recovered/Resolved]
  - Urticaria [Recovered/Resolved]
  - Vomiting [Recovering/Resolving]
  - Drug ineffective [Recovered/Resolved]
